FAERS Safety Report 4301178-0 (Version None)
Quarter: 2004Q1

REPORT INFORMATION
  Report Type: 
  Country: None (occurrence: None)
  Receive Date: 20040218
  Receipt Date: 20020531
  Transmission Date: 20041129
  Serious: No
  Sender: FDA-Public Use
  Company Number: 2002-05-3925

PATIENT
  Sex: Male

DRUGS (1)
  1. PEG-INTRON [Suspect]
     Route: 058

REACTIONS (4)
  - DIARRHOEA [None]
  - HEADACHE [None]
  - NAUSEA [None]
  - VOMITING [None]
